FAERS Safety Report 5473351-X (Version None)
Quarter: 2007Q4

REPORT INFORMATION
  Report Type: 
  Country: None (occurrence: None)
  Receive Date: 20071001
  Receipt Date: 20070921
  Transmission Date: 20080405
  Serious: Yes (Death)
  Sender: FDA-Public Use
  Company Number: GB-AVENTIS-200718781GDDC

PATIENT
  Age: 84 Year
  Sex: Female
  Weight: 55 kg

DRUGS (12)
  1. METRONIDAZOLE [Suspect]
     Indication: CLOSTRIDIUM DIFFICILE COLITIS
     Route: 042
     Dates: start: 20070824, end: 20070905
  2. ALFACALCIDOL [Concomitant]
     Dosage: DOSE: UNK
  3. ASPIRIN [Concomitant]
     Indication: ANGINA PECTORIS
     Route: 048
  4. CALCICHEW                          /00108001/ [Concomitant]
     Dosage: DOSE: UNK
  5. CLOPIDOGREL [Concomitant]
     Route: 048
  6. FLUCLOXACILLIN [Concomitant]
     Indication: SKIN INFECTION
     Route: 042
     Dates: end: 20070905
  7. GLYCERYL TRINITRATE [Concomitant]
     Dosage: DOSE: UNK
  8. HYDROXYZINE [Concomitant]
     Dosage: DOSE: UNK
  9. ISMN [Concomitant]
     Route: 048
  10. LANSOPRAZOLE [Concomitant]
     Dosage: DOSE: UNK
  11. NALOXONE [Concomitant]
     Dosage: DOSE: UNK
  12. PARACETAMOL [Concomitant]
     Dosage: DOSE: UNK

REACTIONS (1)
  - PANCREATITIS ACUTE [None]
